FAERS Safety Report 9598685 (Version 1)
Quarter: 2013Q4

REPORT INFORMATION
  Report Type: Spontaneous
  Country: US (occurrence: US)
  Receive Date: 20131004
  Receipt Date: 20131004
  Transmission Date: 20140711
  Serious: No
  Sender: FDA-Public Use
  Company Number: US-AMGEN-USASP2013025483

PATIENT
  Age: 66 Year
  Sex: Female
  Weight: 61.22 kg

DRUGS (13)
  1. ENBREL [Suspect]
     Indication: PRODUCT USED FOR UNKNOWN INDICATION
     Dosage: 50 MG, QWK
     Route: 058
  2. METHOTREXATE [Concomitant]
     Dosage: 1 UNK, UNK
  3. PREMPRO [Concomitant]
     Dosage: 0.625-2.5
  4. NADOLOL [Concomitant]
     Dosage: 120 MG, UNK
  5. FOLIC ACID [Concomitant]
     Dosage: UNK
  6. WELLBUTRIN [Concomitant]
     Dosage: 200 MG, SR
  7. RANITIDINE [Concomitant]
     Dosage: 300 MG, UNK
  8. NASONEX [Concomitant]
     Dosage: 50 MCG/AC
  9. ACYCLOVIR                          /00587301/ [Concomitant]
     Dosage: 200 MG, UNK
  10. MACRODANTIN [Concomitant]
     Dosage: 25 MG, UNK
  11. FIORICET [Concomitant]
     Dosage: UNK
  12. VICODIN [Concomitant]
     Dosage: 5-300 MG
  13. DIOVAN [Concomitant]
     Dosage: 160 MG, UNK

REACTIONS (1)
  - Influenza [Unknown]
